FAERS Safety Report 4886383-7 (Version None)
Quarter: 2006Q1

REPORT INFORMATION
  Report Type: 
  Country: None (occurrence: None)
  Receive Date: 20060120
  Receipt Date: 20051007
  Transmission Date: 20060701
  Serious: Yes (Hospitalization, Disabling)
  Sender: FDA-Public Use
  Company Number: US-MERCK-0510USA05663

PATIENT
  Age: 50 Year
  Sex: Male
  Weight: 73 kg

DRUGS (2)
  1. VIOXX [Suspect]
     Indication: TENDONITIS
     Route: 048
     Dates: start: 19990101, end: 20040901
  2. IBUPROFEN [Concomitant]
     Route: 065

REACTIONS (2)
  - CARDIAC DISORDER [None]
  - DEPRESSION [None]
